FAERS Safety Report 19057851 (Version 1)
Quarter: 2021Q1

REPORT INFORMATION
  Report Type: Spontaneous
  Country: US (occurrence: US)
  Receive Date: 20210325
  Receipt Date: 20210325
  Transmission Date: 20210420
  Serious: No
  Sender: FDA-Public Use
  Company Number: US-009507513-2103USA005475

PATIENT
  Age: 1 Year
  Sex: Male

DRUGS (2)
  1. M?M?R II [Suspect]
     Active Substance: MEASLES VIRUS STRAIN ENDERS^ ATTENUATED EDMONSTON LIVE ANTIGEN\MUMPS VIRUS STRAIN B LEVEL JERYL LYNN LIVE ANTIGEN\RUBELLA VIRUS STRAIN WISTAR RA 27/3 LIVE ANTIGEN
     Indication: PROPHYLAXIS
     Dates: start: 20210304
  2. STERILE DILUENT (WATER) [Suspect]
     Active Substance: WATER
     Dosage: 1 DOSE
     Dates: start: 20210304, end: 20210304

REACTIONS (1)
  - Pyrexia [Not Recovered/Not Resolved]

NARRATIVE: CASE EVENT DATE: 20210317
